FAERS Safety Report 5597985-7 (Version None)
Quarter: 2008Q1

REPORT INFORMATION
  Report Type: 
  Country: None (occurrence: None)
  Receive Date: 20080122
  Receipt Date: 20080114
  Transmission Date: 20080703
  Serious: Yes (Other)
  Sender: FDA-Public Use
  Company Number: DE-BAYER-200810830GPV

PATIENT
  Age: 30 Year
  Sex: Female
  Weight: 90 kg

DRUGS (6)
  1. AVELOX [Suspect]
     Indication: ASTHMA
     Route: 048
     Dates: start: 20071210, end: 20071217
  2. NOVOPULMON [Concomitant]
     Indication: ASTHMA
     Route: 055
  3. VENTILASTIN [Concomitant]
     Indication: ASTHMA
  4. CLOMIFENE [Concomitant]
     Indication: OVULATION INDUCTION
     Route: 065
  5. OMEPRAZOLE [Concomitant]
     Indication: GASTRITIS
     Dosage: TOTAL DAILY DOSE: 20 MG  UNIT DOSE: 20 MG
     Route: 048
  6. ROXITHROMYCIN [Concomitant]
     Indication: ASTHMA
     Route: 065

REACTIONS (1)
  - ABORTION MISSED [None]
